FAERS Safety Report 5724332-X (Version None)
Quarter: 2008Q2

REPORT INFORMATION
  Report Type: 
  Country: None (occurrence: None)
  Receive Date: 20080428
  Receipt Date: 20080416
  Transmission Date: 20081010
  Serious: Yes (Other)
  Sender: FDA-Public Use
  Company Number: 2007-03555

PATIENT
  Age: 56 Year
  Sex: Male
  Weight: 62 kg

DRUGS (7)
  1. VELCADE [Suspect]
     Indication: MULTIPLE MYELOMA
     Dosage: 2.10 MG, INTRAVENOUS
     Route: 042
     Dates: start: 20070904, end: 20071002
  2. DEXAMETHASONE [Concomitant]
  3. ITRACONAZOLE [Concomitant]
  4. SULFAMETHOXAZOLE AND TRIMETHOPRIM [Concomitant]
  5. FLOMOX (CEFCAPENE PIVOXIL HYDROCHLORIDE) [Concomitant]
  6. MUCOSTA (REBAMIPIDE) [Concomitant]
  7. LASIX [Concomitant]

REACTIONS (10)
  - BLOOD LACTATE DEHYDROGENASE INCREASED [None]
  - BRONCHITIS CHRONIC [None]
  - C-REACTIVE PROTEIN INCREASED [None]
  - COMPUTERISED TOMOGRAM ABNORMAL [None]
  - CYTOMEGALOVIRUS ANTIGEN POSITIVE [None]
  - HEPATIC CYST [None]
  - LUNG DISORDER [None]
  - OXYGEN SATURATION DECREASED [None]
  - PLATELET COUNT DECREASED [None]
  - UPPER RESPIRATORY TRACT INFLAMMATION [None]
